FAERS Safety Report 20360520 (Version 2)
Quarter: 2022Q1

REPORT INFORMATION
  Report Type: Spontaneous
  Country: US (occurrence: US)
  Receive Date: 20220121
  Receipt Date: 20220218
  Transmission Date: 20220423
  Serious: Yes (Other)
  Sender: FDA-Public Use
  Company Number: US-BAYER-2022A011475

PATIENT
  Age: 25 Year
  Sex: Female

DRUGS (3)
  1. KYLEENA [Suspect]
     Active Substance: LEVONORGESTREL
     Indication: Contraception
     Dosage: 17.5?G/DAY
     Route: 015
     Dates: start: 20200618, end: 20220120
  2. VITAMIN D2 [Concomitant]
     Active Substance: ERGOCALCIFEROL
  3. ADVIL [Concomitant]
     Active Substance: IBUPROFEN

REACTIONS (12)
  - Device dislocation [Recovered/Resolved]
  - Genital haemorrhage [Recovered/Resolved]
  - Device issue [Recovered/Resolved]
  - Menstruation irregular [None]
  - Post procedural discomfort [None]
  - Heavy menstrual bleeding [None]
  - Flank pain [None]
  - Pelvic pain [None]
  - Hyperhidrosis [None]
  - Diarrhoea [None]
  - Rash [Recovered/Resolved]
  - Abdominal pain lower [Recovered/Resolved]
